FAERS Safety Report 8257060-X (Version None)
Quarter: 2012Q2

REPORT INFORMATION
  Report Type: 
  Country: None (occurrence: None)
  Receive Date: 20120403
  Receipt Date: 20120326
  Transmission Date: 20120825
  Serious: Yes (Disabling, Other)
  Sender: FDA-Public Use
  Company Number: RU-GLAXOSMITHKLINE-B0791142A

PATIENT
  Age: 9 Year
  Sex: Male

DRUGS (2)
  1. ATRIANCE [Suspect]
     Indication: T-CELL LYMPHOMA
     Route: 042
     Dates: start: 20120101, end: 20120101
  2. CYTARABINE [Concomitant]
     Indication: LEUKAEMIA

REACTIONS (9)
  - NEUROPATHY PERIPHERAL [None]
  - AREFLEXIA [None]
  - DYSSTASIA [None]
  - SENSORY LOSS [None]
  - MOVEMENT DISORDER [None]
  - UPPER MOTOR NEURONE LESION [None]
  - ABASIA [None]
  - PARAPARESIS [None]
  - PERIPHERAL MOTOR NEUROPATHY [None]
